FAERS Safety Report 4661975-9 (Version None)
Quarter: 2005Q2

REPORT INFORMATION
  Report Type: 
  Country: None (occurrence: None)
  Receive Date: 20050511
  Receipt Date: 20050511
  Transmission Date: 20051028
  Serious: Yes (Death)
  Sender: FDA-Public Use
  Company Number: None

PATIENT
  Age: 88 Year
  Sex: Female
  Weight: 45.9 kg

DRUGS (2)
  1. ANGIOMAX [Suspect]
     Indication: ANGINA UNSTABLE
     Dosage: 10.75MG/KG AS AN NGH
     Dates: start: 20050411
  2. ANGIOMAX [Suspect]
     Indication: CARDIAC STRESS TEST
     Dosage: 10.75MG/KG AS AN NGH
     Dates: start: 20050411

REACTIONS (12)
  - APHASIA [None]
  - BLOOD PRESSURE DIASTOLIC DECREASED [None]
  - BLOOD PRESSURE INCREASED [None]
  - BRAIN DEATH [None]
  - BRAIN HERNIATION [None]
  - CONFUSIONAL STATE [None]
  - HAEMORRHAGIC STROKE [None]
  - HEMIPARESIS [None]
  - INCONTINENCE [None]
  - LOSS OF CONSCIOUSNESS [None]
  - MENTAL STATUS CHANGES [None]
  - RESPIRATORY RATE DECREASED [None]
